FAERS Safety Report 9712250 (Version 1)
Quarter: 2013Q4

REPORT INFORMATION
  Report Type: Spontaneous
  Country: US (occurrence: US)
  Receive Date: 20131126
  Receipt Date: 20131126
  Transmission Date: 20140711
  Serious: No
  Sender: FDA-Public Use
  Company Number: US-BRISTOL-MYERS SQUIBB COMPANY-19152933

PATIENT
  Age: 66 Year
  Sex: Female
  Weight: 123.81 kg

DRUGS (4)
  1. BYDUREON [Suspect]
     Indication: TYPE 2 DIABETES MELLITUS
     Dates: start: 20130723
  2. METFORMIN [Concomitant]
     Route: 048
  3. GLYBURIDE [Concomitant]
     Dosage: TAB
     Route: 048
  4. POTASSIUM [Concomitant]
     Dosage: TAB
     Route: 048

REACTIONS (2)
  - Injection site pain [Recovered/Resolved]
  - Injection site nodule [Not Recovered/Not Resolved]
